FAERS Safety Report 6517231-7 (Version None)
Quarter: 2009Q4

REPORT INFORMATION
  Report Type: 
  Country: None (occurrence: None)
  Receive Date: 20091217
  Receipt Date: 20090702
  Transmission Date: 20100525
  Serious: Yes (Hospitalization)
  Sender: FDA-Public Use
  Company Number: 642037

PATIENT
  Age: 14 Day

DRUGS (1)
  1. TAMIFLU [Suspect]
     Indication: H1N1 INFLUENZA

REACTIONS (1)
  - BILIRUBIN CONJUGATED INCREASED [None]
